FAERS Safety Report 17797599 (Version 2)
Quarter: 2020Q2

REPORT INFORMATION
  Report Type: Spontaneous
  Country: IT (occurrence: IT)
  Receive Date: 20200518
  Receipt Date: 20200624
  Transmission Date: 20200714
  Serious: Yes (Hospitalization, Other)
  Sender: FDA-Public Use
  Company Number: IT-MYLANLABS-2020M1048961

PATIENT
  Age: 52 Year
  Sex: Female
  Weight: 48 kg

DRUGS (3)
  1. CARDICOR [Concomitant]
     Active Substance: BISOPROLOL
     Indication: HYPERTENSIVE HEART DISEASE
     Dosage: 2 DOSAGE FORM
     Route: 048
  2. ALDACTONE [Concomitant]
     Active Substance: SPIRONOLACTONE
     Indication: PLEURAL EFFUSION
     Dosage: 50 MILLIGRAM
     Route: 048
  3. FONDAPARINUX [Suspect]
     Active Substance: FONDAPARINUX
     Indication: THROMBOSIS PROPHYLAXIS
     Dosage: 5 MILLIGRAM, QD
     Route: 058
     Dates: start: 20200120, end: 20200123

REACTIONS (3)
  - Anaemia [Recovering/Resolving]
  - Intra-abdominal haematoma [Recovering/Resolving]
  - Incorrect dosage administered [Unknown]

NARRATIVE: CASE EVENT DATE: 20200120
